FAERS Safety Report 4698370-2 (Version None)
Quarter: 2005Q2

REPORT INFORMATION
  Report Type: 
  Country: None (occurrence: None)
  Receive Date: 20050621
  Receipt Date: 20050607
  Transmission Date: 20051028
  Serious: Yes (Other)
  Sender: FDA-Public Use
  Company Number: 2005086906

PATIENT
  Sex: Male

DRUGS (1)
  1. VIAGRA [Suspect]
     Indication: ERECTILE DYSFUNCTION
     Dosage: 25 MG (25 MG, 1 IN 1 D) ORAL
     Route: 048
     Dates: start: 20040101, end: 20050605

REACTIONS (3)
  - EYE PAIN [None]
  - OCULAR HYPERAEMIA [None]
  - RETINAL VASCULAR OCCLUSION [None]
